FAERS Safety Report 5186608-7 (Version None)
Quarter: 2006Q4

REPORT INFORMATION
  Report Type: 
  Country: None (occurrence: None)
  Receive Date: 20061220
  Receipt Date: 20060124
  Transmission Date: 20070319
  Serious: No
  Sender: FDA-Public Use
  Company Number: US-AMGEN-US166202

PATIENT
  Sex: Female

DRUGS (2)
  1. ENBREL [Suspect]
     Indication: PSORIASIS
     Route: 065
     Dates: start: 20050101
  2. CORTICOSTEROID NOS [Concomitant]
     Route: 061

REACTIONS (3)
  - CONDITION AGGRAVATED [None]
  - INJECTION SITE BRUISING [None]
  - PSORIASIS [None]
